FAERS Safety Report 20976215 (Version 2)
Quarter: 2022Q2

REPORT INFORMATION
  Report Type: Spontaneous
  Country: US (occurrence: US)
  Receive Date: 20220617
  Receipt Date: 20220620
  Transmission Date: 20220721
  Serious: No
  Sender: FDA-Public Use
  Company Number: US-PFIZER INC-202200845279

PATIENT
  Sex: Female

DRUGS (1)
  1. PAXLOVID [Suspect]
     Active Substance: NIRMATRELVIR\RITONAVIR
     Indication: COVID-19 treatment
     Dosage: UNK
     Dates: start: 202206

REACTIONS (8)
  - Nasal congestion [Unknown]
  - Wheezing [Unknown]
  - Insomnia [Unknown]
  - Cough [Unknown]
  - Muscular weakness [Unknown]
  - COVID-19 [Unknown]
  - Productive cough [Unknown]
  - Secretion discharge [Unknown]

NARRATIVE: CASE EVENT DATE: 20220601
